FAERS Safety Report 9323111 (Version 3)
Quarter: 2013Q4

REPORT INFORMATION
  Report Type: Spontaneous
  Country: US (occurrence: US)
  Receive Date: 20130603
  Receipt Date: 20131017
  Transmission Date: 20140711
  Serious: Yes (Death, Hospitalization, Other)
  Sender: FDA-Public Use
  Company Number: US-BIOGENIDEC-2013BI047174

PATIENT
  Age: 48 Year
  Sex: Male

DRUGS (3)
  1. TYSABRI [Suspect]
     Indication: MULTIPLE SCLEROSIS
     Route: 042
     Dates: start: 20081002, end: 20130304
  2. PERCOCET [Concomitant]
     Dates: start: 20100209
  3. RITALIN [Concomitant]
     Route: 048
     Dates: start: 20080325

REACTIONS (12)
  - Hypoglycaemic encephalopathy [Fatal]
  - Hypoxic-ischaemic encephalopathy [Fatal]
  - Convulsion [Unknown]
  - Septic shock [Unknown]
  - Gastrointestinal haemorrhage [Unknown]
  - Activities of daily living impaired [Unknown]
  - Nausea [Not Recovered/Not Resolved]
  - Vomiting [Unknown]
  - Hypoglycaemia [Not Recovered/Not Resolved]
  - Diabetic ketoacidosis [Not Recovered/Not Resolved]
  - Multiple sclerosis [Not Recovered/Not Resolved]
  - Depression [Unknown]
